FAERS Safety Report 4299385-9 (Version None)
Quarter: 2004Q1

REPORT INFORMATION
  Report Type: 
  Country: None (occurrence: None)
  Receive Date: 20040219
  Receipt Date: 20040122
  Transmission Date: 20041129
  Serious: No
  Sender: FDA-Public Use
  Company Number: US-GLAXOSMITHKLINE-A0494684A

PATIENT
  Age: 72 Year
  Sex: Male

DRUGS (3)
  1. AVODART [Suspect]
     Indication: BENIGN PROSTATIC HYPERPLASIA
     Dosage: .5MG PER DAY
     Route: 048
  2. SLEEP AID [Concomitant]
     Route: 065
  3. MULTI-VITAMIN [Concomitant]

REACTIONS (1)
  - LIBIDO DECREASED [None]
